FAERS Safety Report 15434900 (Version 1)
Quarter: 2018Q3

REPORT INFORMATION
  Report Type: Spontaneous
  Country: US (occurrence: US)
  Receive Date: 20180923
  Receipt Date: 20180923
  Transmission Date: 20181010
  Serious: Yes (Other)
  Sender: FDA-Public Use
  Company Number: None

PATIENT
  Age: 51 Year
  Sex: Female
  Weight: 99 kg

DRUGS (10)
  1. FLUOXETINE [Concomitant]
     Active Substance: FLUOXETINE HYDROCHLORIDE
  2. VITAMIN D3 [Concomitant]
     Active Substance: CHOLECALCIFEROL
  3. BUPROPION HCL XL TABLS 300MG; GENERIC FOR: WELLBUTRIN XL TABS 300MG [Suspect]
     Active Substance: BUPROPION HYDROCHLORIDE
     Indication: DEPRESSION
     Dosage: ?          QUANTITY:1 TABLET(S);?
     Route: 048
  4. VITAMIN B2 [Concomitant]
     Active Substance: RIBOFLAVIN
  5. CALCIUM [Concomitant]
     Active Substance: CALCIUM
  6. TRAZODONE [Concomitant]
     Active Substance: TRAZODONE HYDROCHLORIDE
  7. NARATRIPTAN [Concomitant]
     Active Substance: NARATRIPTAN HYDROCHLORIDE
  8. ALLEGRA [Concomitant]
     Active Substance: FEXOFENADINE HYDROCHLORIDE
  9. MULTIVITAMIN [Concomitant]
     Active Substance: VITAMINS
  10. MAGNESIUM [Concomitant]
     Active Substance: MAGNESIUM

REACTIONS (15)
  - Fatigue [None]
  - Stress at work [None]
  - Decreased interest [None]
  - Depressed mood [None]
  - Anger [None]
  - Thinking abnormal [None]
  - Disturbance in attention [None]
  - Memory impairment [None]
  - Product substitution issue [None]
  - Suicidal ideation [None]
  - Drug ineffective [None]
  - Depression [None]
  - Irritability [None]
  - Crying [None]
  - Mood altered [None]

NARRATIVE: CASE EVENT DATE: 20180921
